FAERS Safety Report 7583004-X (Version None)
Quarter: 2011Q2

REPORT INFORMATION
  Report Type: 
  Country: None (occurrence: None)
  Receive Date: 20110630
  Receipt Date: 20110527
  Transmission Date: 20111010
  Serious: Yes (Other)
  Sender: FDA-Public Use
  Company Number: US-JNJCP-30000056120

PATIENT
  Age: 24 Year
  Sex: Female
  Weight: 52 kg

DRUGS (3)
  1. NTG ULTRA SHEER SUNBLOCK SPF70 USA 08680068770 0868068770USA [Suspect]
     Dosage: QUARTER SIZE, ONCE DAILY
     Route: 061
     Dates: start: 20060501, end: 20110526
  2. PURPOSE DUAL TREATMENT MOISTURE LOTION SPF 15 USA 381370034513 [Suspect]
     Dosage: QUARTER SIZE, ONCE A DAY
     Route: 061
  3. NTG ULTRA SHEER DRY TOUCH SUNBLK SPF55 USA 08680068790 0868068790USA [Suspect]
     Dosage: QUARTER SIZE, ONCE DAILY
     Route: 061

REACTIONS (2)
  - EXPIRED DRUG ADMINISTERED [None]
  - SKIN CANCER [None]
